FAERS Safety Report 6107478-6 (Version None)
Quarter: 2009Q1

REPORT INFORMATION
  Report Type: 
  Country: None (occurrence: None)
  Receive Date: 20090302
  Receipt Date: 20080401
  Transmission Date: 20090719
  Serious: Yes (Other)
  Sender: FDA-Public Use
  Company Number: 2008NI0065

PATIENT
  Age: 89 Year
  Sex: Female
  Weight: 53.5244 kg

DRUGS (8)
  1. NITROLINGUAL PUMPSPRAY [Suspect]
     Indication: ANGINA PECTORIS
     Dosage: PO
     Route: 048
     Dates: start: 20080322, end: 20080322
  2. UNSPECIFIED THYROID MEDICATION [Concomitant]
  3. DIGOXIN [Concomitant]
  4. DIOVAN [Concomitant]
  5. HYDROCHLOROTHIAZIDE [Concomitant]
  6. PLAVIX [Concomitant]
  7. ATENOLOL [Concomitant]
  8. NORVASC [Concomitant]

REACTIONS (3)
  - DRUG INEFFECTIVE [None]
  - FEELING ABNORMAL [None]
  - HYPERTENSION [None]
